FAERS Safety Report 6062152-X (Version None)
Quarter: 2009Q1

REPORT INFORMATION
  Report Type: 
  Country: None (occurrence: None)
  Receive Date: 20090129
  Receipt Date: 20090129
  Transmission Date: 20090719
  Serious: Yes (Disabling, Other)
  Sender: FDA-Public Use
  Company Number: None

PATIENT
  Age: 66 Year
  Sex: Female
  Weight: 58.9676 kg

DRUGS (1)
  1. SIMVASTATIN [Suspect]
     Indication: LOW DENSITY LIPOPROTEIN INCREASED
     Dosage: ONE IN EVENING PO 5 EVENING DOSES
     Route: 048

REACTIONS (7)
  - ANXIETY [None]
  - ASTHENIA [None]
  - CONFUSIONAL STATE [None]
  - DYSPNOEA [None]
  - EXTRASYSTOLES [None]
  - FATIGUE [None]
  - PALPITATIONS [None]
